FAERS Safety Report 12052078 (Version 2)
Quarter: 2016Q1

REPORT INFORMATION
  Report Type: Spontaneous
  Country: ES (occurrence: ES)
  Receive Date: 20160209
  Receipt Date: 20160303
  Transmission Date: 20160526
  Serious: Yes (Hospitalization)
  Sender: FDA-Public Use
  Company Number: ES-TEVA-633264ISR

PATIENT
  Age: 52 Year
  Sex: Male

DRUGS (3)
  1. LINEZOLID. [Suspect]
     Active Substance: LINEZOLID
     Indication: STAPHYLOCOCCAL INFECTION
     Dosage: 600 MG/12 HOURS
     Route: 042
  2. OBIRE [Interacting]
     Active Substance: OXITRIPTAN
     Indication: DEPRESSION
     Dosage: 200 MG/8 HOURS
     Route: 065
  3. LINEZOLID. [Interacting]
     Active Substance: LINEZOLID
     Dosage: 600 MG/12 HOURS
     Route: 048

REACTIONS (2)
  - Drug interaction [Recovered/Resolved]
  - Serotonin syndrome [Recovered/Resolved]
